FAERS Safety Report 10353249 (Version 1)
Quarter: 2014Q3

REPORT INFORMATION
  Report Type: Spontaneous
  Country: BR (occurrence: BR)
  Receive Date: 20140730
  Receipt Date: 20140730
  Transmission Date: 20150326
  Serious: Yes (Hospitalization)
  Sender: FDA-Public Use
  Company Number: BR-ELI_LILLY_AND_COMPANY-BR201407007075

PATIENT
  Age: 17 Year
  Sex: Male
  Weight: 71.6 kg

DRUGS (6)
  1. HUMULIN N [Concomitant]
     Active Substance: INSULIN HUMAN
     Dosage: UNK, UNKNOWN
     Route: 065
  2. HUMALOG [Suspect]
     Active Substance: INSULIN LISPRO
     Indication: TYPE 1 DIABETES MELLITUS
     Dosage: 20 IU, EACH MORNING
     Route: 058
     Dates: start: 20140707, end: 20140714
  3. HUMALOG [Suspect]
     Active Substance: INSULIN LISPRO
     Dosage: 15 IU, EACH EVENING
     Route: 058
     Dates: start: 20140707, end: 20140714
  4. HUMALOG [Suspect]
     Active Substance: INSULIN LISPRO
     Indication: TYPE 1 DIABETES MELLITUS
     Dosage: UNK, QD
     Route: 058
     Dates: start: 20140715, end: 20140717
  5. HUMALOG [Suspect]
     Active Substance: INSULIN LISPRO
     Dosage: 30 IU, EACH MORNING
     Route: 058
     Dates: start: 20140715, end: 20140717
  6. HUMALOG [Suspect]
     Active Substance: INSULIN LISPRO
     Dosage: 20 IU, EACH EVENING
     Route: 058
     Dates: start: 20140715, end: 20140717

REACTIONS (4)
  - Feeling abnormal [Unknown]
  - Blood glucose increased [Not Recovered/Not Resolved]
  - Drug effect delayed [Not Recovered/Not Resolved]
  - Convulsion [Recovering/Resolving]

NARRATIVE: CASE EVENT DATE: 20140715
